FAERS Safety Report 4270449-9 (Version None)
Quarter: 2004Q1

REPORT INFORMATION
  Report Type: 
  Country: None (occurrence: None)
  Receive Date: 20040114
  Receipt Date: 20040106
  Transmission Date: 20041129
  Serious: Yes (Other)
  Sender: FDA-Public Use
  Company Number: CA-GLAXOSMITHKLINE-A0491935A

PATIENT
  Age: 67 Year
  Sex: Male

DRUGS (9)
  1. SEREVENT [Suspect]
     Indication: ILL-DEFINED DISORDER
     Route: 055
  2. THEO-DUR [Suspect]
     Indication: ILL-DEFINED DISORDER
     Route: 048
  3. COLCHICINE [Concomitant]
  4. COUMADIN [Concomitant]
  5. DIGOXIN [Concomitant]
  6. NOVOMETHACIN [Concomitant]
  7. FLOVENT [Concomitant]
     Route: 055
  8. VENTOLIN [Concomitant]
  9. VERAPAMIL HCL [Concomitant]

REACTIONS (1)
  - APLASIA PURE RED CELL [None]
